FAERS Safety Report 16873994 (Version 2)
Quarter: 2019Q4

REPORT INFORMATION
  Report Type: Spontaneous
  Country: DE (occurrence: DE)
  Receive Date: 20191001
  Receipt Date: 20191022
  Transmission Date: 20200122
  Serious: Yes (Hospitalization, Other)
  Sender: FDA-Public Use
  Company Number: DE-JNJFOC-20190931465

PATIENT
  Age: 35 Year
  Sex: Female
  Weight: 90 kg

DRUGS (1)
  1. STELARA [Suspect]
     Active Substance: USTEKINUMAB
     Indication: CROHN^S DISEASE
     Dosage: 4X 130 MG (10 -APR-2019); AFTER 8 WEEKS: 90 MG
     Route: 042
     Dates: start: 20190410

REACTIONS (3)
  - Venous thrombosis limb [Unknown]
  - Pulmonary embolism [Unknown]
  - Mammoplasty [Unknown]

NARRATIVE: CASE EVENT DATE: 201908
